FAERS Safety Report 8060301-5 (Version None)
Quarter: 2012Q1

REPORT INFORMATION
  Report Type: 
  Country: None (occurrence: None)
  Receive Date: 20120120
  Receipt Date: 20120118
  Transmission Date: 20120608
  Serious: No
  Sender: FDA-Public Use
  Company Number: US-PFIZER INC-2012015219

PATIENT
  Sex: Female

DRUGS (2)
  1. ZOLOFT [Suspect]
     Dosage: 100 MG, 1X/DAY (ONCE QD WITH 25 MG)
     Route: 048
  2. ZOLOFT [Suspect]
     Dosage: 25 MG, 1X/DAY (ONCE QD WITH 100 MG)
     Route: 048

REACTIONS (2)
  - DEPRESSION [None]
  - ANXIETY [None]
